FAERS Safety Report 9920190 (Version 1)
Quarter: 2014Q1

REPORT INFORMATION
  Report Type: Spontaneous
  Country: US (occurrence: US)
  Receive Date: 20140224
  Receipt Date: 20140224
  Transmission Date: 20141002
  Serious: Yes (Other)
  Sender: FDA-Public Use
  Company Number: PHHY2014US020447

PATIENT
  Sex: Male

DRUGS (8)
  1. ACETYLSALICYLIC ACID [Suspect]
     Dosage: 20.25 MG, UNK
  2. OMALIZUMAB [Concomitant]
  3. ZAFIRLUKAST [Concomitant]
  4. MONTELUKAST [Concomitant]
  5. METHYLPREDNISOLONE [Concomitant]
     Route: 048
  6. HYDROCORTISONE [Concomitant]
  7. BUDESONIDE [Concomitant]
  8. FORMOTEROL [Concomitant]

REACTIONS (4)
  - Allergic respiratory disease [Unknown]
  - Allergic respiratory symptom [Unknown]
  - Drug hypersensitivity [Unknown]
  - Throat tightness [Unknown]
